FAERS Safety Report 4798404-0 (Version None)
Quarter: 2005Q4

REPORT INFORMATION
  Report Type: 
  Country: None (occurrence: None)
  Receive Date: 20051011
  Receipt Date: 20050922
  Transmission Date: 20060501
  Serious: Yes (Other)
  Sender: FDA-Public Use
  Company Number: TRP_0457_2005

PATIENT
  Age: 49 Year
  Sex: Male
  Weight: 83.9154 kg

DRUGS (10)
  1. RIBASPHERE [Suspect]
     Indication: HEPATITIS C
     Dosage: DF PO
     Route: 048
     Dates: start: 20050205
  2. PEG-INTRON [Suspect]
     Indication: HEPATITIS C
     Dosage: DF SC
     Route: 058
     Dates: start: 20050205
  3. ATENOLOL [Concomitant]
  4. BUSPAR [Concomitant]
  5. LORAZEPAM [Concomitant]
  6. NORTRIPTYLINE HCL [Concomitant]
  7. PRILOSEC [Concomitant]
  8. REMERON [Concomitant]
  9. VITAMIN E [Concomitant]
  10. MULTI-VITAMINS [Concomitant]

REACTIONS (1)
  - THYROID DISORDER [None]
